FAERS Safety Report 15318166 (Version 1)
Quarter: 2018Q3

REPORT INFORMATION
  Report Type: Spontaneous
  Country: DE (occurrence: DE)
  Receive Date: 20180825
  Receipt Date: 20180825
  Transmission Date: 20181010
  Serious: Yes (Life-Threatening, Hospitalization, Other)
  Sender: FDA-Public Use
  Company Number: DE-TORRENT-00003146

PATIENT
  Age: 21 Year
  Sex: Female

DRUGS (7)
  1. AMITRIPTYLINE [Suspect]
     Active Substance: AMITRIPTYLINE
     Indication: PRODUCT USED FOR UNKNOWN INDICATION
     Dosage: 60 TABLETS OF 100 MG
     Route: 048
  2. KETOPROFEN. [Interacting]
     Active Substance: KETOPROFEN
     Indication: PRODUCT USED FOR UNKNOWN INDICATION
     Dosage: 30 TABLETS OF 50 MG (= 1500 MG)
  3. NICOTINIC ACID [Interacting]
     Active Substance: NIACIN
     Indication: PRODUCT USED FOR UNKNOWN INDICATION
     Dosage: 56 TABLETS OF 500 MG (= 28,000 MG)
     Route: 048
  4. GABAPENTIN. [Interacting]
     Active Substance: GABAPENTIN
     Indication: PRODUCT USED FOR UNKNOWN INDICATION
     Dosage: 40 TABLETS OF 400 MG (= 16,000 MG)
     Route: 048
  5. CARVEDILOL. [Interacting]
     Active Substance: CARVEDILOL
     Indication: PRODUCT USED FOR UNKNOWN INDICATION
     Dosage: 70 TABLETS OF 25 MG (= 1750 MG)
     Route: 048
  6. AMLODIPINE [Interacting]
     Active Substance: AMLODIPINE BESYLATE
     Indication: PRODUCT USED FOR UNKNOWN INDICATION
     Dosage: 60 TABLETS OF 5 MG (= 300 MG), 1 TRIMESTER
     Route: 048
  7. TORASEMIDE [Interacting]
     Active Substance: TORSEMIDE
     Indication: PRODUCT USED FOR UNKNOWN INDICATION
     Dosage: 50 TABLETS OF 10 MG (= 500 MG)
     Route: 048

REACTIONS (21)
  - Suicide attempt [Recovered/Resolved]
  - Pulse absent [Recovered/Resolved]
  - Ventricular hypokinesia [Recovered/Resolved]
  - Cardiac failure [Recovered/Resolved]
  - PO2 decreased [Recovered/Resolved]
  - Compartment syndrome [Unknown]
  - Toxicity to various agents [Recovering/Resolving]
  - Intentional overdose [Recovered/Resolved]
  - Blood lactic acid increased [Recovered/Resolved]
  - Cardiac arrest [Recovered/Resolved]
  - PCO2 increased [Recovered/Resolved]
  - Aspartate aminotransferase increased [Unknown]
  - Bradycardia [Recovered/Resolved]
  - Drug interaction [Unknown]
  - Nodal rhythm [Recovered/Resolved]
  - Loss of consciousness [Recovered/Resolved]
  - Sinoatrial block [Recovered/Resolved]
  - Circulatory collapse [Recovered/Resolved]
  - Alanine aminotransferase increased [Unknown]
  - Blood creatine phosphokinase increased [Recovered/Resolved]
  - Femoral artery dissection [Unknown]
